FAERS Safety Report 6073899-3 (Version None)
Quarter: 2009Q1

REPORT INFORMATION
  Report Type: 
  Country: None (occurrence: None)
  Receive Date: 20090211
  Receipt Date: 20090131
  Transmission Date: 20090719
  Serious: Yes (Other)
  Sender: FDA-Public Use
  Company Number: CO-MERCK-0902COL00001

PATIENT
  Age: 11 Year
  Sex: Female

DRUGS (3)
  1. SINGULAIR [Suspect]
     Indication: RHINITIS ALLERGIC
     Route: 048
     Dates: start: 20060101, end: 20070101
  2. LEUPROLIDE ACETATE [Concomitant]
     Indication: PRECOCIOUS PUBERTY
     Route: 065
     Dates: start: 20060101
  3. DESLORATADINE [Concomitant]
     Indication: RHINITIS ALLERGIC
     Route: 048

REACTIONS (2)
  - AGGRESSION [None]
  - SUICIDAL IDEATION [None]
